FAERS Safety Report 17137734 (Version 1)
Quarter: 2019Q4

REPORT INFORMATION
  Report Type: Report from Study
  Country: US (occurrence: US)
  Receive Date: 20191211
  Receipt Date: 20191211
  Transmission Date: 20200122
  Serious: Yes (Hospitalization)
  Sender: FDA-Public Use
  Company Number: US-TEVA-2019-US-1150898

PATIENT
  Age: 59 Year
  Sex: Female
  Weight: 84.9 kg

DRUGS (10)
  1. BBI608 [Suspect]
     Active Substance: NAPABUCASIN
     Indication: COLORECTAL CANCER METASTATIC
     Route: 065
  2. LOMOTIL [Concomitant]
     Active Substance: ATROPINE SULFATE\DIPHENOXYLATE HYDROCHLORIDE
  3. BEVACIZUMAB. [Suspect]
     Active Substance: BEVACIZUMAB
     Indication: COLORECTAL CANCER METASTATIC
     Dosage: Q2WEEKS
     Route: 042
     Dates: start: 20180611, end: 20180626
  4. IRINOTECAN [Suspect]
     Active Substance: IRINOTECAN
     Indication: COLORECTAL CANCER METASTATIC
     Dosage: 54.8571 MILLIGRAM DAILY; FORTNIGHTY
     Route: 042
     Dates: start: 20180611, end: 20180626
  5. LEUCOVORIN. [Suspect]
     Active Substance: LEUCOVORIN
     Indication: COLORECTAL CANCER METASTATIC
     Dosage: FORTNIGHTY
     Route: 042
     Dates: start: 20180611, end: 20180626
  6. 5-FLUOROURACIL [Suspect]
     Active Substance: FLUOROURACIL
     Indication: COLORECTAL CANCER METASTATIC
     Dosage: 770 MG, FORTNIGHTY
     Route: 042
     Dates: start: 20180611, end: 20180626
  7. COUMADIN [Concomitant]
     Active Substance: WARFARIN SODIUM
  8. KEFLEX [Concomitant]
     Active Substance: CEPHALEXIN
  9. 5-FLUOROURACIL [Suspect]
     Active Substance: FLUOROURACIL
     Dosage: 4610 MG, FORTNIGHTY
     Route: 040
     Dates: start: 20180611, end: 20180626
  10. BREO ELLIPTA [Concomitant]
     Active Substance: FLUTICASONE FUROATE\VILANTEROL TRIFENATATE

REACTIONS (1)
  - Febrile neutropenia [Recovered/Resolved]

NARRATIVE: CASE EVENT DATE: 20180707
